FAERS Safety Report 6313003-7 (Version None)
Quarter: 2009Q3

REPORT INFORMATION
  Report Type: 
  Country: None (occurrence: None)
  Receive Date: 20090814
  Receipt Date: 20090814
  Transmission Date: 20100115
  Serious: No
  Sender: FDA-Public Use
  Company Number: None

PATIENT
  Sex: Female
  Weight: 72.5755 kg

DRUGS (2)
  1. HUMIRA [Suspect]
     Indication: RHEUMATOID ARTHRITIS
     Dosage: 40MG 1 INJECTIONX2WEEKS SQ
     Dates: start: 20060606, end: 20061122
  2. HUMIRA [Suspect]
     Indication: RHEUMATOID ARTHRITIS
     Dosage: 40MG 1 INJECTIONX2WEEKS SQ
     Dates: start: 20081122, end: 20081219

REACTIONS (7)
  - BACTERIAL INFECTION [None]
  - EPISTAXIS [None]
  - FUNGAL INFECTION [None]
  - GAMMOPATHY [None]
  - HERPES VIRUS INFECTION [None]
  - IMPETIGO [None]
  - SINUSITIS [None]
